FAERS Safety Report 21915484 (Version 5)
Quarter: 2024Q3

REPORT INFORMATION
  Report Type: Report from Study
  Country: US (occurrence: US)
  Receive Date: 20230126
  Receipt Date: 20240828
  Transmission Date: 20241016
  Serious: Yes (Other)
  Sender: NOVARTIS
  Company Number: US-002147023-NVSC2023US015470

PATIENT
  Sex: Female

DRUGS (3)
  1. TASIGNA [Suspect]
     Active Substance: NILOTINIB
     Indication: Philadelphia positive chronic myeloid leukaemia
     Dosage: 600 MG, QD
     Route: 048
  2. TASIGNA [Suspect]
     Active Substance: NILOTINIB
     Dosage: 450 MG, QD
     Route: 048
     Dates: start: 20230210
  3. TASIGNA [Suspect]
     Active Substance: NILOTINIB
     Dosage: 150 MG, TID
     Route: 048

REACTIONS (4)
  - Pancreatitis [Unknown]
  - Dementia [Unknown]
  - Neoplasm malignant [Unknown]
  - Off label use [Unknown]
